FAERS Safety Report 10341971 (Version 2)
Quarter: 2014Q3

REPORT INFORMATION
  Report Type: Report from Study
  Country: US (occurrence: US)
  Receive Date: 20140725
  Receipt Date: 20140804
  Transmission Date: 20150326
  Serious: Yes (Other)
  Sender: FDA-Public Use
  Company Number: US-ABBVIE-14K-163-1261932-00

PATIENT
  Age: 71 Year
  Sex: Male
  Weight: 72.64 kg

DRUGS (11)
  1. VITAMIN D3 [Concomitant]
     Active Substance: CHOLECALCIFEROL
     Indication: PARATHYROIDECTOMY
  2. ACTONEL [Concomitant]
     Active Substance: RISEDRONATE SODIUM
     Indication: PARATHYROIDECTOMY
  3. AMITRIPTYLINE [Concomitant]
     Active Substance: AMITRIPTYLINE
     Indication: INSOMNIA
     Dates: start: 2011
  4. AMITRIPTYLINE [Concomitant]
     Active Substance: AMITRIPTYLINE
     Indication: ANXIETY
  5. LOSARTAN [Concomitant]
     Active Substance: LOSARTAN
     Indication: HYPERTENSION
  6. ACTONEL [Concomitant]
     Active Substance: RISEDRONATE SODIUM
     Indication: BONE DENSITY ABNORMAL
  7. HUMIRA [Suspect]
     Active Substance: ADALIMUMAB
     Indication: COLITIS ULCERATIVE
     Dosage: 4 INJECTION LOADING DOSE
     Route: 058
     Dates: start: 20140625, end: 20140625
  8. HUMIRA [Suspect]
     Active Substance: ADALIMUMAB
     Dosage: 2 INJECTIONS
     Route: 058
     Dates: start: 20140709, end: 20140709
  9. VITAMIN D3 [Concomitant]
     Active Substance: CHOLECALCIFEROL
     Indication: VITAMIN SUPPLEMENTATION
  10. HUMIRA [Suspect]
     Active Substance: ADALIMUMAB
     Route: 058
     Dates: start: 20140723
  11. BALSALAZIDE [Concomitant]
     Active Substance: BALSALAZIDE
     Indication: COLITIS ULCERATIVE

REACTIONS (10)
  - Diplopia [Unknown]
  - Anxiety [Not Recovered/Not Resolved]
  - Transient ischaemic attack [Unknown]
  - Dizziness [Unknown]
  - Vision blurred [Not Recovered/Not Resolved]
  - Sensory disturbance [Not Recovered/Not Resolved]
  - Blood potassium decreased [Unknown]
  - Balance disorder [Not Recovered/Not Resolved]
  - Photopsia [Not Recovered/Not Resolved]
  - Visual impairment [Unknown]

NARRATIVE: CASE EVENT DATE: 20140625
